FAERS Safety Report 9858136 (Version 2)
Quarter: 2014Q1

REPORT INFORMATION
  Report Type: Spontaneous
  Country: US (occurrence: US)
  Receive Date: 20140131
  Receipt Date: 20140313
  Transmission Date: 20141002
  Serious: Yes (Other)
  Sender: FDA-Public Use
  Company Number: US-PFIZER INC-2014028857

PATIENT
  Age: 71 Year
  Sex: Male
  Weight: 117 kg

DRUGS (1)
  1. TIKOSYN [Suspect]
     Indication: PALPITATIONS
     Dosage: 500 UG, 2X/DAY
     Dates: start: 2013

REACTIONS (1)
  - Arrhythmia [Unknown]
